FAERS Safety Report 4790177-0 (Version None)
Quarter: 2005Q4

REPORT INFORMATION
  Report Type: 
  Country: None (occurrence: None)
  Receive Date: 20051005
  Receipt Date: 20051005
  Transmission Date: 20060501
  Serious: Yes (Hospitalization)
  Sender: FDA-Public Use
  Company Number: None

PATIENT
  Age: 55 Year
  Sex: Female
  Weight: 45.5 kg

DRUGS (2)
  1. DILANTIN [Suspect]
     Indication: CONVULSION
     Dosage: DILANTIN 500 MG PO QD
     Route: 048
  2. HYDROCHLOROTHIAZIDE [Concomitant]

REACTIONS (5)
  - ALCOHOLISM [None]
  - CONDITION AGGRAVATED [None]
  - FALL [None]
  - GRAND MAL CONVULSION [None]
  - PARTIAL SEIZURES [None]
